FAERS Safety Report 25414874 (Version 2)
Quarter: 2025Q3

REPORT INFORMATION
  Report Type: Report from Study
  Country: US (occurrence: US)
  Receive Date: 20250609
  Receipt Date: 20250902
  Transmission Date: 20251021
  Serious: Yes (Other)
  Sender: UCB
  Company Number: US-UCBSA-2025033810

PATIENT
  Age: 5 Year
  Sex: Female
  Weight: 13.3 kg

DRUGS (3)
  1. FINTEPLA [Suspect]
     Active Substance: FENFLURAMINE
     Indication: Severe myoclonic epilepsy of infancy
     Dates: start: 20210331
  2. FINTEPLA [Suspect]
     Active Substance: FENFLURAMINE
  3. FINTEPLA [Suspect]
     Active Substance: FENFLURAMINE
     Dosage: 2 MILLILITER, 2X/DAY (BID)

REACTIONS (2)
  - Hyperdynamic left ventricle [Unknown]
  - Vagal nerve stimulator implantation [Not Recovered/Not Resolved]

NARRATIVE: CASE EVENT DATE: 20250531
